FAERS Safety Report 14857992 (Version 2)
Quarter: 2018Q2

REPORT INFORMATION
  Report Type: Spontaneous
  Country: CH (occurrence: CH)
  Receive Date: 20180508
  Receipt Date: 20180529
  Transmission Date: 20180711
  Serious: Yes (Hospitalization, Other)
  Sender: FDA-Public Use
  Company Number: CH-AMGEN-CHESP2018059367

PATIENT
  Sex: Male
  Weight: 1.47 kg

DRUGS (1)
  1. CINACALCET HCL [Suspect]
     Active Substance: CINACALCET HYDROCHLORIDE
     Indication: FOETAL EXPOSURE DURING PREGNANCY
     Dosage: UNK
     Route: 064

REACTIONS (9)
  - Neonatal respiratory distress syndrome [Unknown]
  - Apnoea [Unknown]
  - Bradycardia [Unknown]
  - Hyponatraemia [Unknown]
  - Foetal exposure during pregnancy [Unknown]
  - Premature baby [Unknown]
  - Fluid intake reduced [Unknown]
  - Low birth weight baby [Recovering/Resolving]
  - Hyperbilirubinaemia [Unknown]
